FAERS Safety Report 8793373 (Version 1)
Quarter: 2012Q4

REPORT INFORMATION
  Report Type: 
  Country: FR (occurrence: FR)
  Receive Date: 20120917
  Receipt Date: 20120917
  Transmission Date: 20130627
  Serious: Yes (Hospitalization)
  Sender: FDA-Public Use
  Company Number: FR-ASTRAZENECA-2012SE70705

PATIENT
  Age: 72 Year
  Sex: Female

DRUGS (5)
  1. CRESTOR [Suspect]
     Route: 048
  2. DIFFU-K [Suspect]
     Route: 048
  3. PLAVIX [Suspect]
     Route: 048
     Dates: start: 200702
  4. FLUDEX [Suspect]
     Route: 048
  5. SOTALEX [Suspect]
     Indication: ARRHYTHMIA
     Route: 048
     Dates: start: 200510

REACTIONS (7)
  - Cerebral vasoconstriction [Recovered/Resolved]
  - Subarachnoid haemorrhage [Recovered/Resolved]
  - Monoclonal immunoglobulin present [Recovered/Resolved]
  - Antinuclear antibody positive [Recovered/Resolved]
  - Meningorrhagia [None]
  - Blood sodium decreased [None]
  - Blood potassium decreased [None]
